FAERS Safety Report 16180007 (Version 2)
Quarter: 2019Q2

REPORT INFORMATION
  Report Type: Spontaneous
  Country: AU (occurrence: AU)
  Receive Date: 20190410
  Receipt Date: 20190506
  Transmission Date: 20190711
  Serious: Yes (Other)
  Sender: FDA-Public Use
  Company Number: AU-EISAI MEDICAL RESEARCH-EC-2019-054683

PATIENT
  Age: 75 Year
  Sex: Male

DRUGS (3)
  1. LENVIMA [Suspect]
     Active Substance: LENVATINIB
     Indication: THYROID CANCER
     Route: 048
     Dates: start: 201602
  2. LENVIMA [Suspect]
     Active Substance: LENVATINIB
     Route: 048
     Dates: start: 201708
  3. LENVIMA [Suspect]
     Active Substance: LENVATINIB
     Dosage: DOSE AND FREQUENCY NOT PROVIDED (MULTIPLE DOSE REDUCTIONS)
     Route: 048

REACTIONS (2)
  - Polycythaemia [Not Recovered/Not Resolved]
  - Mucosal inflammation [Unknown]

NARRATIVE: CASE EVENT DATE: 20180831
